FAERS Safety Report 15438249 (Version 3)
Quarter: 2018Q4

REPORT INFORMATION
  Report Type: Report from Study
  Country: None (occurrence: AR)
  Receive Date: 20180928
  Receipt Date: 20181114
  Transmission Date: 20190204
  Serious: Yes (Other)
  Sender: FDA-Public Use
  Company Number: AR-ABBVIE-18K-007-2500808-00

PATIENT
  Age: 43 Year
  Sex: Male

DRUGS (3)
  1. HUMIRA [Suspect]
     Active Substance: ADALIMUMAB
     Indication: SPONDYLOARTHROPATHY
  2. HUMIRA [Suspect]
     Active Substance: ADALIMUMAB
     Indication: ANKYLOSING SPONDYLITIS
     Route: 058
     Dates: start: 20170918, end: 201809
  3. PREGABALINE [Concomitant]
     Active Substance: PREGABALIN
     Indication: PRODUCT USED FOR UNKNOWN INDICATION

REACTIONS (14)
  - Loss of consciousness [Recovered/Resolved]
  - Muscle contractions involuntary [Recovered/Resolved]
  - Neurological symptom [Not Recovered/Not Resolved]
  - Speech disorder [Unknown]
  - Epilepsy [Unknown]
  - Gait disturbance [Unknown]
  - Drug effect incomplete [Unknown]
  - Rosacea [Unknown]
  - Hypotension [Unknown]
  - Syncope [Unknown]
  - Unevaluable event [Unknown]
  - Systemic lupus erythematosus [Unknown]
  - Electroencephalogram abnormal [Unknown]
  - Product dispensing error [Unknown]

NARRATIVE: CASE EVENT DATE: 2018
